FAERS Safety Report 25114058 (Version 1)
Quarter: 2025Q1

REPORT INFORMATION
  Report Type: Spontaneous
  Country: FR (occurrence: FR)
  Receive Date: 20250324
  Receipt Date: 20250324
  Transmission Date: 20250408
  Serious: Yes (Hospitalization)
  Sender: FRESENIUS KABI
  Company Number: None

PATIENT
  Age: 54 Year
  Sex: Male
  Weight: 54 kg

DRUGS (14)
  1. PEMETREXED [Suspect]
     Active Substance: PEMETREXED
     Indication: Lung adenocarcinoma stage IV
     Route: 042
     Dates: start: 20250212, end: 20250212
  2. KEYTRUDA [Suspect]
     Active Substance: PEMBROLIZUMAB
     Indication: Lung adenocarcinoma stage IV
     Route: 042
     Dates: start: 20250212, end: 20250212
  3. CARBOPLATIN [Suspect]
     Active Substance: CARBOPLATIN
     Indication: Lung adenocarcinoma stage IV
     Route: 042
     Dates: start: 20250212, end: 20250212
  4. PIPERACILLIN [Suspect]
     Active Substance: PIPERACILLIN
     Indication: Infection prophylaxis
     Route: 042
     Dates: start: 20250225, end: 20250307
  5. TAZOBACTAM SODIUM [Suspect]
     Active Substance: TAZOBACTAM SODIUM
     Indication: Infection prophylaxis
     Route: 042
     Dates: start: 20250225, end: 20250307
  6. CYAMEMAZINE [CYAMEMAZINE] [Concomitant]
     Indication: Product used for unknown indication
  7. DESLORATADINE [DESLORATADINE] [Concomitant]
     Indication: Product used for unknown indication
  8. LEUCOVORIN [Concomitant]
     Active Substance: LEUCOVORIN\LEUCOVORIN CALCIUM
     Indication: Product used for unknown indication
  9. PHLOROGLUCINOL HYDRATE [PHLOROGLUCINOL HYDRATE] [Concomitant]
     Indication: Product used for unknown indication
  10. DIFFU K, capsule [POTASSIUM CHLORIDE] [Concomitant]
     Indication: Product used for unknown indication
  11. EXACYL (TRANEXAMIC ACID) [Concomitant]
     Indication: Product used for unknown indication
  12. TRIMEBUTINE [Concomitant]
     Active Substance: TRIMEBUTINE
     Indication: Product used for unknown indication
  13. MORPHINE [Concomitant]
     Active Substance: MORPHINE
     Indication: Product used for unknown indication
  14. METOCLOPRAMIDE [METOCLOPRAMIDE] [Concomitant]
     Indication: Product used for unknown indication

REACTIONS (1)
  - Hepatic cytolysis [Recovering/Resolving]

NARRATIVE: CASE EVENT DATE: 20250302
